FAERS Safety Report 17615109 (Version 5)
Quarter: 2020Q2

REPORT INFORMATION
  Report Type: Spontaneous
  Country: US (occurrence: US)
  Receive Date: 20200402
  Receipt Date: 20200601
  Transmission Date: 20200713
  Serious: No
  Sender: FDA-Public Use
  Company Number: US-PFIZER INC-2019548679

PATIENT
  Age: 67 Year
  Sex: Female
  Weight: 76.2 kg

DRUGS (3)
  1. PRISTIQ EXTENDED-RELEASE [Suspect]
     Active Substance: DESVENLAFAXINE SUCCINATE
     Indication: MAJOR DEPRESSION
     Dosage: 50 MG, 1X/DAY
     Route: 048
  2. CLONAZEPAM. [Concomitant]
     Active Substance: CLONAZEPAM
     Indication: INSOMNIA
     Dosage: 0.5 MG, 1X/DAY(ONCE A DAY AT NIGHT BY MOUTH)
     Route: 048
  3. QUETIAPINE FUMARATE. [Concomitant]
     Active Substance: QUETIAPINE FUMARATE
     Indication: DEPRESSION
     Dosage: 50 MG, 1X/DAY(TWO 25MG TINY TABLETS BY MOUTH EACH NIGHT)
     Route: 048

REACTIONS (4)
  - Seasonal affective disorder [Unknown]
  - Generalised anxiety disorder [Unknown]
  - Anxiety [Unknown]
  - Intentional product use issue [Unknown]
